FAERS Safety Report 16855325 (Version 3)
Quarter: 2023Q4

REPORT INFORMATION
  Report Type: Spontaneous
  Country: US (occurrence: US)
  Receive Date: 20190926
  Receipt Date: 20231022
  Transmission Date: 20240109
  Serious: Yes (Other)
  Sender: FDA-Public Use
  Company Number: US-GILEAD-2019-0429269

PATIENT
  Age: 64 Year
  Sex: Female
  Weight: 49.887 kg

DRUGS (102)
  1. TRUVADA [Suspect]
     Active Substance: EMTRICITABINE\TENOFOVIR DISOPROXIL FUMARATE
     Indication: HIV infection
     Dosage: UNK
     Route: 048
     Dates: start: 20090818, end: 20190827
  2. TRUVADA [Suspect]
     Active Substance: EMTRICITABINE\TENOFOVIR DISOPROXIL FUMARATE
     Dosage: UNK
     Route: 048
     Dates: start: 20140421, end: 20190924
  3. TRUVADA [Suspect]
     Active Substance: EMTRICITABINE\TENOFOVIR DISOPROXIL FUMARATE
     Dosage: UNK
     Route: 048
     Dates: start: 200908, end: 201909
  4. GENVOYA [Concomitant]
     Active Substance: COBICISTAT\ELVITEGRAVIR\EMTRICITABINE\TENOFOVIR ALAFENAMIDE FUMARATE
     Indication: HIV infection
     Dosage: UNK
     Dates: start: 20190926, end: 20190926
  5. CHOLECALCIFEROL [Concomitant]
     Active Substance: CHOLECALCIFEROL
     Dosage: UNK
     Dates: start: 20181109
  6. CHOLECALCIFEROL [Concomitant]
     Active Substance: CHOLECALCIFEROL
     Dosage: UNK
     Dates: start: 20180917
  7. NORVIR [Concomitant]
     Active Substance: RITONAVIR
     Indication: HIV infection
     Dosage: UNK
     Dates: start: 20140421, end: 20191006
  8. REYATAZ [Concomitant]
     Active Substance: ATAZANAVIR SULFATE
     Indication: HIV infection
     Dosage: UNK
     Dates: start: 20180626, end: 20190829
  9. TIVICAY [Concomitant]
     Active Substance: DOLUTEGRAVIR SODIUM
     Indication: HIV infection
  10. ACYCLOVIR [Concomitant]
     Active Substance: ACYCLOVIR
     Indication: Viral infection
     Dosage: UNK
     Dates: start: 20140423, end: 20190819
  11. ADVAIR HFA [Concomitant]
     Active Substance: FLUTICASONE PROPIONATE\SALMETEROL XINAFOATE
     Indication: Chronic obstructive pulmonary disease
     Dosage: UNK
     Dates: start: 20110420, end: 20151214
  12. ALBUTEROL [Concomitant]
     Active Substance: ALBUTEROL
     Indication: Asthma
     Dosage: UNK
     Dates: start: 20170924
  13. AMITRIPTYLINE [Concomitant]
     Active Substance: AMITRIPTYLINE
     Indication: Depression
     Dosage: UNK
     Dates: start: 20090805, end: 20150805
  14. AMLODIPINE BESYLATE [Concomitant]
     Active Substance: AMLODIPINE BESYLATE
     Indication: Hypertension
     Dosage: UNK
     Dates: start: 20190813, end: 20190905
  15. AMOXICILLIN\CLAVULANATE POTASSIUM [Concomitant]
     Active Substance: AMOXICILLIN\CLAVULANATE POTASSIUM
     Indication: Bacterial infection
     Dosage: UNK
     Dates: start: 20110519, end: 20150403
  16. AMOXICILLIN [Concomitant]
     Active Substance: AMOXICILLIN
     Indication: Bacterial infection
     Dosage: UNK
     Dates: start: 20171217, end: 20181017
  17. ATORVASTATIN [Concomitant]
     Active Substance: ATORVASTATIN
     Indication: Blood cholesterol increased
     Dosage: UNK
     Dates: start: 20120826, end: 20151207
  18. BANOPHEN [Concomitant]
     Active Substance: DIPHENHYDRAMINE HYDROCHLORIDE
     Indication: Hypersensitivity
     Dosage: UNK
     Dates: start: 20170531, end: 20170705
  19. BENICAR [Concomitant]
     Active Substance: OLMESARTAN MEDOXOMIL
     Indication: Hypertension
     Dosage: UNK
     Dates: start: 20140128, end: 20141201
  20. CEFDINIR [Concomitant]
     Active Substance: CEFDINIR
     Indication: Infection
     Dosage: UNK
     Dates: start: 20140903, end: 20140903
  21. CEFTRIAXONE [Concomitant]
     Active Substance: CEFTRIAXONE\CEFTRIAXONE SODIUM
     Indication: Infection
     Dosage: UNK
     Dates: start: 20130605, end: 20130607
  22. CEFUROXIME AXETIL [Concomitant]
     Active Substance: CEFUROXIME AXETIL
     Indication: Infection
     Dosage: UNK
     Dates: start: 20190208, end: 20190208
  23. CEPHALEXIN [Concomitant]
     Active Substance: CEPHALEXIN
     Indication: Infection
     Dosage: UNK
     Dates: start: 20110506, end: 20180510
  24. CIPROFLOXACIN [Concomitant]
     Active Substance: CIPROFLOXACIN
     Indication: Infection
     Dosage: UNK
     Dates: start: 20121113, end: 20150810
  25. COLACE [Concomitant]
     Active Substance: DOCUSATE SODIUM
     Indication: Constipation
     Dosage: UNK
     Dates: start: 20130605
  26. COLESEVELAM [Concomitant]
     Active Substance: COLESEVELAM
     Indication: Weight control
     Dosage: UNK
     Dates: start: 20180730, end: 20190904
  27. CYCLOBENZAPRINE [Concomitant]
     Active Substance: CYCLOBENZAPRINE
     Indication: Pain
     Dosage: UNK
     Dates: start: 20160212, end: 20190826
  28. DETROL LA [Concomitant]
     Active Substance: TOLTERODINE TARTRATE
     Indication: Urinary incontinence
     Dosage: UNK
     Dates: start: 20090902, end: 20131021
  29. DIPHENHYDRAMINE [Concomitant]
     Active Substance: DIPHENHYDRAMINE
     Indication: Hypersensitivity
     Dosage: UNK
     Dates: start: 20160606, end: 20170424
  30. DOCUSATE SODIUM [Concomitant]
     Active Substance: DOCUSATE SODIUM
     Indication: Constipation
     Dosage: UNK
     Dates: start: 20090705, end: 20100802
  31. EFFEXOR [Concomitant]
     Active Substance: VENLAFAXINE HYDROCHLORIDE
     Indication: Depression
     Dosage: UNK
     Dates: start: 20090705, end: 20110531
  32. FENTANYL [Concomitant]
     Active Substance: FENTANYL\FENTANYL CITRATE
     Indication: Pain
     Dosage: UNK
     Dates: start: 20151030, end: 20190920
  33. FENTANYL [Concomitant]
     Active Substance: FENTANYL\FENTANYL CITRATE
     Dosage: UNK
     Dates: start: 20151030
  34. DURAGESIC [Concomitant]
     Active Substance: FENTANYL
     Indication: Pain
     Dosage: UNK
     Dates: start: 20180817
  35. MOMETASONE FUROATE [Concomitant]
     Active Substance: MOMETASONE FUROATE
     Indication: Rhinitis
     Dosage: UNK
     Dates: start: 20130605
  36. FLUTICASONE PROPIONATE [Concomitant]
     Active Substance: FLUTICASONE PROPIONATE
     Indication: Rhinitis
     Dosage: UNK
     Dates: start: 20090705, end: 20140623
  37. FLUVIRIN [INFLUENZA VACCINE INACT SAG 3V] [Concomitant]
     Indication: Prophylaxis
     Dosage: UNK
     Dates: start: 20111003, end: 20111003
  38. FOLIC ACID [Concomitant]
     Active Substance: FOLIC ACID
     Indication: Hypovitaminosis
     Dosage: UNK
     Dates: start: 20100317, end: 20101001
  39. FUROSEMIDE [Concomitant]
     Active Substance: FUROSEMIDE
     Dosage: UNK
     Dates: start: 20090705, end: 20151214
  40. GABAPENTIN [Concomitant]
     Active Substance: GABAPENTIN
     Indication: Neuralgia
     Dosage: UNK
     Dates: start: 20110930, end: 20190727
  41. GRALISE [Concomitant]
     Active Substance: GABAPENTIN
     Indication: Seizure
     Dosage: UNK
     Dates: start: 20151116, end: 20181005
  42. HEPARIN SODIUM [Concomitant]
     Active Substance: HEPARIN SODIUM
     Indication: Thrombosis prophylaxis
     Dosage: UNK
     Dates: start: 20130606, end: 20130607
  43. ACETAMINOPHEN\HYDROCODONE [Concomitant]
     Active Substance: ACETAMINOPHEN\HYDROCODONE
     Indication: Pain
     Dosage: UNK
     Dates: start: 20170125, end: 20170125
  44. HYDROXYZINE [Concomitant]
     Active Substance: HYDROXYZINE HYDROCHLORIDE
     Indication: Anxiety
     Dosage: UNK
     Dates: start: 20150727, end: 20160505
  45. HYDROXYZINE [Concomitant]
     Active Substance: HYDROXYZINE HYDROCHLORIDE
     Indication: Depression
  46. ISONIAZID [Concomitant]
     Active Substance: ISONIAZID
     Indication: Tuberculosis
     Dosage: UNK
     Dates: start: 20150409, end: 20151219
  47. POTASSIUM PHOSPHATE, DIBASIC\POTASSIUM PHOSPHATE, MONOBASIC [Concomitant]
     Active Substance: POTASSIUM PHOSPHATE, DIBASIC\POTASSIUM PHOSPHATE, MONOBASIC
     Dosage: UNK
     Dates: start: 20130606, end: 20130707
  48. KLOR-CON [Concomitant]
     Active Substance: POTASSIUM CHLORIDE
     Indication: Electrolyte substitution therapy
     Dosage: UNK
     Dates: start: 20090705, end: 20151214
  49. LACTULOSE [Concomitant]
     Active Substance: LACTULOSE
     Indication: Constipation
     Dosage: UNK
     Dates: start: 20101012, end: 20190507
  50. LASIX [Concomitant]
     Active Substance: FUROSEMIDE
     Dosage: UNK
     Dates: start: 20130605
  51. LEVOTHYROXINE [Concomitant]
     Active Substance: LEVOTHYROXINE
     Indication: Thyroid disorder
     Dosage: UNK
     Dates: start: 20110806, end: 20191009
  52. LIDODERM [Concomitant]
     Active Substance: LIDOCAINE
     Indication: Neuralgia
     Dosage: UNK
     Dates: start: 20090705, end: 20141201
  53. LIPITOR [Concomitant]
     Active Substance: ATORVASTATIN CALCIUM
     Indication: Blood cholesterol increased
     Dosage: UNK
     Dates: start: 20091202, end: 20120530
  54. LOVAZA [Concomitant]
     Active Substance: OMEGA-3-ACID ETHYL ESTERS
     Dosage: UNK
     Dates: start: 20130424, end: 20150216
  55. LYRICA [Concomitant]
     Active Substance: PREGABALIN
     Indication: Pain
     Dosage: UNK
     Dates: start: 20160116, end: 20190123
  56. MAGNESIUM SULFATE [Concomitant]
     Active Substance: MAGNESIUM SULFATE\MAGNESIUM SULFATE HEPTAHYDRATE
     Indication: Hypomagnesaemia
     Dosage: UNK
     Dates: start: 20130606, end: 20130607
  57. METRONIDAZOLE [Concomitant]
     Active Substance: METRONIDAZOLE
     Indication: Infection
     Dosage: UNK
     Dates: start: 20140712, end: 20140908
  58. MONTELUKAST SODIUM [Concomitant]
     Active Substance: MONTELUKAST SODIUM
     Indication: Asthma
     Dosage: UNK
     Dates: start: 20120826, end: 20190724
  59. MORPHINE SULFATE [Concomitant]
     Active Substance: MORPHINE SULFATE
     Indication: Pain
     Dosage: UNK
     Dates: start: 20110202, end: 20110730
  60. NEURONTIN [Concomitant]
     Active Substance: GABAPENTIN
     Indication: Pain
     Dosage: UNK
     Dates: start: 20130605
  61. NITROFURANTOIN MONOHYDRATE MACROCRYSTALS [Concomitant]
     Active Substance: NITROFURANTOIN\NITROFURANTOIN MONOHYDRATE
     Indication: Bacterial infection
     Dosage: UNK
     Dates: start: 20140608
  62. NORTRIPTYLINE [Concomitant]
     Active Substance: NORTRIPTYLINE
     Indication: Depression
     Dosage: UNK
     Dates: start: 20130401, end: 20130501
  63. NYSTATIN [Concomitant]
     Active Substance: NYSTATIN
     Indication: Fungal infection
     Dosage: UNK
     Dates: start: 20090707, end: 20161206
  64. OMEGA-3 FATTY ACIDS [Concomitant]
     Active Substance: OMEGA-3 FATTY ACIDS
     Indication: Supplementation therapy
     Dosage: UNK
     Dates: start: 20130605, end: 20130607
  65. OMEPRAZOLE [Concomitant]
     Active Substance: OMEPRAZOLE
     Indication: Gastrooesophageal reflux disease
     Dosage: UNK
     Dates: start: 20161012, end: 20190727
  66. OXYBUTYNIN [Concomitant]
     Active Substance: OXYBUTYNIN
     Indication: Urinary incontinence
     Dosage: UNK
     Dates: start: 20181017, end: 20190930
  67. OXYCODONE HYDROCHLORIDE [Concomitant]
     Active Substance: OXYCODONE HYDROCHLORIDE
     Indication: Pain
     Dosage: UNK
     Dates: start: 20110930, end: 20151110
  68. OXYCONTIN [Concomitant]
     Active Substance: OXYCODONE HYDROCHLORIDE
     Indication: Pain
     Dosage: UNK
     Dates: start: 20090706, end: 20151110
  69. PEPCID [Concomitant]
     Active Substance: FAMOTIDINE
     Indication: Gastrooesophageal reflux disease
     Dosage: UNK
     Dates: start: 20130605
  70. PNEUMOCOCCAL VACCINE, POLYVALENT 23 [Concomitant]
     Active Substance: PNEUMOCOCCAL VACCINE, POLYVALENT 23
     Indication: Prophylaxis
     Dosage: UNK
     Dates: start: 20130606, end: 20130607
  71. POTASSIUM CHLORIDE [Concomitant]
     Active Substance: POTASSIUM CHLORIDE
     Dosage: UNK
     Dates: start: 20131214
  72. PREGABALIN [Concomitant]
     Active Substance: PREGABALIN
     Indication: Pain
     Dosage: UNK
     Dates: start: 20190827
  73. PROAIR HFA [Concomitant]
     Active Substance: ALBUTEROL SULFATE
     Indication: Asthma
     Dosage: UNK
     Dates: start: 20090705, end: 20140623
  74. PROMETHAZINE [Concomitant]
     Active Substance: PROMETHAZINE HYDROCHLORIDE
     Indication: Hypersensitivity
     Dosage: UNK
     Dates: start: 20140204, end: 20140204
  75. QUETIAPINE FUMARATE [Concomitant]
     Active Substance: QUETIAPINE FUMARATE
     Indication: Mental disorder
     Dosage: UNK
     Dates: start: 20120407, end: 20190923
  76. RANITIDINE [Concomitant]
     Active Substance: RANITIDINE
     Indication: Gastrooesophageal reflux disease
     Dosage: UNK
     Dates: start: 20131223, end: 20151213
  77. SEROQUEL [Concomitant]
     Active Substance: QUETIAPINE FUMARATE
     Indication: Depression
     Dosage: UNK
     Dates: start: 20090705, end: 20120311
  78. SHINGRIX [Concomitant]
     Active Substance: RECOMBINANT VARICELLA ZOSTER VIRUS (VZV) GLYCOPROTEIN E
     Indication: Prophylaxis
     Dosage: UNK
     Dates: start: 20200818
  79. SINGULAIR [Concomitant]
     Active Substance: MONTELUKAST SODIUM
     Indication: Asthma
     Dosage: UNK
     Dates: start: 20090902, end: 20120726
  80. SUCRALFATE [Concomitant]
     Active Substance: SUCRALFATE
     Indication: Prophylaxis against gastrointestinal ulcer
     Dosage: UNK
     Dates: start: 20161116, end: 20180205
  81. CARAFATE [Concomitant]
     Active Substance: SUCRALFATE
     Indication: Gastric ulcer
     Dosage: UNK
     Dates: start: 20171216
  82. SULFACETAMIDE [Concomitant]
     Active Substance: SULFACETAMIDE
     Indication: Bacterial infection
     Dosage: UNK
     Dates: start: 20100219, end: 20150202
  83. SULFAMETHOXAZOLE AND TRIMETHOPRIM [Concomitant]
     Active Substance: SULFAMETHOXAZOLE\TRIMETHOPRIM
     Indication: Bacterial infection
     Dosage: UNK
     Dates: start: 20140209, end: 20181229
  84. THIAMINE [Concomitant]
     Active Substance: THIAMINE
     Indication: Hypovitaminosis
     Dosage: UNK
     Dates: start: 20180817
  85. TOLTERODINE [Concomitant]
     Active Substance: TOLTERODINE
     Indication: Urinary incontinence
     Dosage: UNK
     Dates: start: 20140522, end: 20180501
  86. TRAMADOL HCL [Concomitant]
     Active Substance: TRAMADOL HYDROCHLORIDE
     Indication: Pain
     Dosage: UNK
     Dates: start: 20180501, end: 20190828
  87. ADENOSINE [Concomitant]
     Active Substance: ADENOSINE
     Dosage: UNK
     Dates: start: 20090707, end: 20120223
  88. VANCOMYCIN HYDROCHLORIDE [Concomitant]
     Active Substance: VANCOMYCIN HYDROCHLORIDE
     Indication: Bacterial infection
     Dosage: UNK
     Dates: start: 20130605, end: 20130607
  89. VENLAFAXINE HCL [Concomitant]
     Active Substance: VENLAFAXINE HYDROCHLORIDE
     Indication: Depression
     Dosage: UNK
     Dates: start: 20100702, end: 20190923
  90. VENTOLIN HFA [Concomitant]
     Active Substance: ALBUTEROL SULFATE
     Indication: Asthma
     Dosage: UNK
     Dates: start: 20170109, end: 20190509
  91. VITAMIN B6 [Concomitant]
     Active Substance: PYRIDOXINE HYDROCHLORIDE
     Indication: Hypovitaminosis
     Dosage: UNK
     Dates: start: 20140712
  92. VITAMIN B6 [Concomitant]
     Active Substance: PYRIDOXINE HYDROCHLORIDE
     Indication: Supplementation therapy
  93. VITAMIN C [Concomitant]
     Active Substance: ASCORBIC ACID
     Indication: Hypovitaminosis
     Dosage: UNK
     Dates: start: 20140712
  94. VITAMIN C [Concomitant]
     Active Substance: ASCORBIC ACID
     Indication: Supplementation therapy
  95. VITAMIN D2 [Concomitant]
     Active Substance: ERGOCALCIFEROL
     Indication: Hypovitaminosis
     Dosage: UNK
     Dates: start: 20101025, end: 20110519
  96. VITAMIN D2 [Concomitant]
     Active Substance: ERGOCALCIFEROL
     Indication: Supplementation therapy
  97. WELCHOL [Concomitant]
     Active Substance: COLESEVELAM HYDROCHLORIDE
     Indication: Blood cholesterol increased
     Dosage: UNK
     Dates: start: 20101025, end: 20180702
  98. ZINC SULFATE [Concomitant]
     Active Substance: ZINC SULFATE
     Indication: Hypovitaminosis
     Dosage: UNK
     Dates: start: 20140714
  99. ZINC SULFATE [Concomitant]
     Active Substance: ZINC SULFATE
     Indication: Supplementation therapy
  100. SERTRALINE HYDROCHLORIDE [Concomitant]
     Active Substance: SERTRALINE HYDROCHLORIDE
     Indication: Depression
     Dosage: UNK
     Dates: start: 20080115
  101. ZOVIRAX [Concomitant]
     Active Substance: ACYCLOVIR
     Indication: Infection
     Dosage: UNK
     Dates: start: 20080115
  102. CRANBERRY CONCENTRATE [ASCORBIC ACID;VACCINIUM MACROCARPON FRUIT] [Concomitant]

REACTIONS (10)
  - Multiple fractures [Recovered/Resolved]
  - Osteoporosis [Not Recovered/Not Resolved]
  - Emotional distress [Recovered/Resolved]
  - Loss of personal independence in daily activities [Not Recovered/Not Resolved]
  - Dysstasia [Not Recovered/Not Resolved]
  - Quality of life decreased [Not Recovered/Not Resolved]
  - Anhedonia [Not Recovered/Not Resolved]
  - Economic problem [Not Recovered/Not Resolved]
  - Anxiety [Not Recovered/Not Resolved]
  - Pain [Not Recovered/Not Resolved]

NARRATIVE: CASE EVENT DATE: 20180401
